FAERS Safety Report 13332671 (Version 1)
Quarter: 2017Q1

REPORT INFORMATION
  Report Type: Spontaneous
  Country: US (occurrence: US)
  Receive Date: 20170313
  Receipt Date: 20170313
  Transmission Date: 20170428
  Serious: No
  Sender: FDA-Public Use
  Company Number: GXBR2016US001920

PATIENT
  Age: 53 Year
  Sex: Male
  Weight: 65.76 kg

DRUGS (2)
  1. METAXALONE. [Suspect]
     Active Substance: METAXALONE
     Indication: ARTHRALGIA
     Dosage: 800 MG, BID
     Route: 048
     Dates: start: 20160512, end: 20160519
  2. IBUPROFEN. [Concomitant]
     Active Substance: IBUPROFEN
     Indication: ARTHRALGIA
     Dosage: 800 MG, TID

REACTIONS (1)
  - Drug ineffective [Recovered/Resolved]
